FAERS Safety Report 10597516 (Version 3)
Quarter: 2015Q1

REPORT INFORMATION
  Report Type: Report from Study
  Country: US (occurrence: US)
  Receive Date: 20141121
  Receipt Date: 20150203
  Transmission Date: 20150720
  Serious: Yes (Hospitalization)
  Sender: FDA-Public Use
  Company Number: US-BAYER-2014-159597

PATIENT
  Age: 73 Year
  Sex: Male
  Weight: 88.89 kg

DRUGS (10)
  1. NEXAVAR [Suspect]
     Active Substance: SORAFENIB
     Indication: HEPATIC CANCER
     Dosage: 400 MG, BID
     Route: 048
     Dates: start: 20141016
  2. NEXAVAR [Suspect]
     Active Substance: SORAFENIB
     Indication: HEPATIC CANCER
     Dosage: 200 MG, BID
     Route: 048
  3. SULFAMETHOXAZOLE [Concomitant]
     Active Substance: SULFAMETHOXAZOLE
  4. NEXIUM [Concomitant]
     Active Substance: ESOMEPRAZOLE MAGNESIUM
  5. TAMSULOSIN [Concomitant]
     Active Substance: TAMSULOSIN
  6. CARVEDILOL. [Concomitant]
     Active Substance: CARVEDILOL
  7. RAPAMUNE [Concomitant]
     Active Substance: SIROLIMUS
  8. PRAVASTATIN [Concomitant]
     Active Substance: PRAVASTATIN\PRAVASTATIN SODIUM
  9. TACROLIMUS. [Concomitant]
     Active Substance: TACROLIMUS
  10. ASPIRIN. [Concomitant]
     Active Substance: ASPIRIN

REACTIONS (5)
  - Feeling cold [None]
  - Pyrexia [None]
  - Diarrhoea [Unknown]
  - Pyrexia [Unknown]
  - Hyperaesthesia [None]

NARRATIVE: CASE EVENT DATE: 201410
